FAERS Safety Report 22535005 (Version 2)
Quarter: 2023Q2

REPORT INFORMATION
  Report Type: Spontaneous
  Country: DE (occurrence: DE)
  Receive Date: 20230608
  Receipt Date: 20230630
  Transmission Date: 20230721
  Serious: Yes (Hospitalization, Other)
  Sender: FDA-Public Use
  Company Number: DE-002147023-NVSC2023DE128224

PATIENT
  Age: 36 Year
  Sex: Male

DRUGS (1)
  1. KESIMPTA [Suspect]
     Active Substance: OFATUMUMAB
     Indication: Relapsing-remitting multiple sclerosis
     Dosage: 20 MG, ONCE/SINGLE
     Route: 058
     Dates: start: 20230526, end: 20230526

REACTIONS (4)
  - Multiple sclerosis relapse [Not Recovered/Not Resolved]
  - Facial paresis [Not Recovered/Not Resolved]
  - Vestibular disorder [Not Recovered/Not Resolved]
  - Ischaemia [Unknown]

NARRATIVE: CASE EVENT DATE: 20230528
